FAERS Safety Report 25289273 (Version 1)
Quarter: 2025Q2

REPORT INFORMATION
  Report Type: Spontaneous
  Country: US (occurrence: US)
  Receive Date: 20250509
  Receipt Date: 20250509
  Transmission Date: 20250717
  Serious: No
  Sender: MYLAN
  Company Number: US-MYLANLABS-2025M1036812

PATIENT

DRUGS (4)
  1. DILANTIN [Suspect]
     Active Substance: PHENYTOIN
     Indication: Seizure
  2. DILANTIN [Suspect]
     Active Substance: PHENYTOIN
     Route: 065
  3. DILANTIN [Suspect]
     Active Substance: PHENYTOIN
     Route: 065
  4. DILANTIN [Suspect]
     Active Substance: PHENYTOIN

REACTIONS (4)
  - Fatigue [Unknown]
  - Somnolence [Unknown]
  - Therapeutic response changed [Unknown]
  - Product substitution issue [Unknown]
